FAERS Safety Report 10464550 (Version 6)
Quarter: 2018Q2

REPORT INFORMATION
  Report Type: Report from Study
  Country: US (occurrence: US)
  Receive Date: 20140919
  Receipt Date: 20180508
  Transmission Date: 20180711
  Serious: Yes (Hospitalization, Other)
  Sender: FDA-Public Use
  Company Number: US-UCBSA-2014011565

PATIENT
  Age: 64 Year
  Sex: Female
  Weight: 113 kg

DRUGS (8)
  1. LEVETIRACETAM. [Suspect]
     Active Substance: LEVETIRACETAM
     Indication: SEIZURE
     Dosage: 15 ML, 2X/DAY (BID); ORAL SOLUTION 100 MG/ML
  2. KEPPRA XR [Suspect]
     Active Substance: LEVETIRACETAM
     Indication: PETIT MAL EPILEPSY
     Dosage: 1500MG (3 TABS OF 500MG)
     Dates: start: 201403
  3. RABEPRAZOLE [Concomitant]
     Active Substance: RABEPRAZOLE
     Indication: HIATUS HERNIA
  4. LISINOPRIL + HIDROCLOROTIAZIDA [Concomitant]
     Active Substance: HYDROCHLOROTHIAZIDE\LISINOPRIL
     Indication: HYPERTENSION
     Dosage: 20/25DAILY
  5. CENTRUM SILVER [Concomitant]
     Active Substance: MINERALS\VITAMINS
  6. VITAMIN C [Concomitant]
     Active Substance: ASCORBIC ACID
  7. KEPPRA XR [Suspect]
     Active Substance: LEVETIRACETAM
     Indication: SEIZURE
     Dosage: 500MG/6 DAY
     Dates: start: 20100127
  8. KEPPRA XR [Suspect]
     Active Substance: LEVETIRACETAM
     Indication: GENERALISED TONIC-CLONIC SEIZURE
     Dosage: 1000MG (SINCE 2010 OR 2011)

REACTIONS (13)
  - Loss of consciousness [Unknown]
  - Gingival bleeding [Not Recovered/Not Resolved]
  - Weight increased [Recovering/Resolving]
  - Wrong technique in product usage process [Unknown]
  - Somnolence [Recovered/Resolved]
  - Regurgitation [Not Recovered/Not Resolved]
  - Hiatus hernia [Recovering/Resolving]
  - Tooth fracture [Not Recovered/Not Resolved]
  - Petit mal epilepsy [Recovering/Resolving]
  - Gastrooesophageal reflux disease [Not Recovered/Not Resolved]
  - Product quality issue [Unknown]
  - Tooth erosion [Not Recovered/Not Resolved]
  - Seizure [Not Recovered/Not Resolved]

NARRATIVE: CASE EVENT DATE: 201311
